FAERS Safety Report 7681718-4 (Version None)
Quarter: 2011Q3

REPORT INFORMATION
  Report Type: 
  Country: None (occurrence: None)
  Receive Date: 20110812
  Receipt Date: 20110729
  Transmission Date: 20111222
  Serious: Yes (Other)
  Sender: FDA-Public Use
  Company Number: JP-WATSON-2009-07539

PATIENT
  Sex: Male

DRUGS (12)
  1. CLARITIN  REDITABS                         /00917501/ [Concomitant]
     Indication: NASAL CONGESTION
     Dosage: 10 MG, UNKNOWN
     Route: 048
     Dates: start: 20091009, end: 20091026
  2. DASEN [Concomitant]
     Dosage: 30 MG, DAILY
     Route: 048
     Dates: start: 20091027, end: 20091104
  3. THEO-DUR [Concomitant]
     Dosage: 400 MG, UNKNOWN
     Route: 048
     Dates: start: 20091027, end: 20091104
  4. LANSOPRAZOLE [Concomitant]
     Indication: GASTROOESOPHAGEAL REFLUX DISEASE
     Dosage: 15 MG, DAILY
     Route: 048
     Dates: start: 20020520
  5. ANTOBRON [Concomitant]
     Dosage: 45 MG, DAILY
     Route: 048
     Dates: start: 20091027, end: 20091104
  6. TENORMIN [Concomitant]
     Indication: HYPERTENSION
     Dosage: 50 MG, DAILY
     Route: 048
     Dates: start: 19990520
  7. NOSLAN [Concomitant]
     Indication: NASAL CONGESTION
     Dosage: 1 DOSAGE FORMS
     Route: 045
     Dates: start: 20091009, end: 20091027
  8. TOWK [Concomitant]
     Indication: NASAL CONGESTION
     Dosage: 1 DOSAGE FORMS
     Route: 045
     Dates: start: 20091009, end: 20091124
  9. ENALAPRIL MALEATE [Concomitant]
     Indication: HYPERTENSION
     Dosage: 5 MG, DAILY
     Route: 048
     Dates: start: 19990520
  10. MEDICON                            /00048102/ [Concomitant]
     Dosage: 45 MG, DAILY
     Route: 048
     Dates: start: 20091027, end: 20091104
  11. RAPAFLO [Suspect]
     Indication: BLADDER OBSTRUCTION
     Dosage: 4 MG, BID
     Route: 048
     Dates: start: 20090126
  12. ZITHROMAX [Concomitant]
     Dosage: 500 MG, UNKNOWN
     Route: 048
     Dates: start: 20091027, end: 20091030

REACTIONS (1)
  - LEUKOCYTOSIS [None]
